FAERS Safety Report 5574529-7 (Version None)
Quarter: 2007Q4

REPORT INFORMATION
  Report Type: 
  Country: None (occurrence: None)
  Receive Date: 20071221
  Receipt Date: 20071001
  Transmission Date: 20080405
  Serious: Yes (Life-Threatening, Hospitalization, Disabling, Other)
  Sender: FDA-Public Use
  Company Number: ADE#07-007COM#07-257

PATIENT
  Age: 62 Year
  Sex: Male
  Weight: 96.1626 kg

DRUGS (2)
  1. METFORMIN HYDROCHLORIDE ER [Suspect]
     Indication: DIABETES MELLITUS
     Dosage: 5 TABLETS DAILY
     Dates: start: 20070801, end: 20071002
  2. GLYBURIDE [Concomitant]

REACTIONS (9)
  - BLOOD GLUCOSE INCREASED [None]
  - FEELING DRUNK [None]
  - LACTIC ACIDOSIS [None]
  - PERIPHERAL COLDNESS [None]
  - PHARMACEUTICAL PRODUCT COMPLAINT [None]
  - RASH [None]
  - RENAL FAILURE [None]
  - SKIN DISCOLOURATION [None]
  - TREMOR [None]
